FAERS Safety Report 7588154-X (Version None)
Quarter: 2011Q3

REPORT INFORMATION
  Report Type: 
  Country: None (occurrence: None)
  Receive Date: 20110705
  Receipt Date: 20110608
  Transmission Date: 20111222
  Serious: Yes (Other)
  Sender: FDA-Public Use
  Company Number: US-BAYER-201020577NA

PATIENT
  Age: 25 Year
  Sex: Female
  Weight: 63 kg

DRUGS (5)
  1. YAZ [Suspect]
  2. YAZ [Suspect]
     Indication: PREMENSTRUAL SYNDROME
     Dosage: UNK UNK, QD
     Route: 048
     Dates: start: 20060101, end: 20090101
  3. LORTAB [Concomitant]
     Dosage: 1-2 TABS EVERY 4-6 HOURS AS NEEDED
     Route: 048
     Dates: start: 20091004
  4. LOESTRIN 1.5/30 [Concomitant]
     Dosage: UNK UNK, PRN
     Route: 048
     Dates: start: 20091004
  5. FLEXERIL [Concomitant]
     Dosage: 10 MG, UNK
     Route: 048
     Dates: start: 20091004

REACTIONS (3)
  - GALLBLADDER INJURY [None]
  - ABDOMINAL PAIN [None]
  - CHOLELITHIASIS [None]
